FAERS Safety Report 11869167 (Version 1)
Quarter: 2015Q4

REPORT INFORMATION
  Report Type: Spontaneous
  Country: US (occurrence: US)
  Receive Date: 20151226
  Receipt Date: 20151226
  Transmission Date: 20160305
  Serious: No
  Sender: FDA-Public Use
  Company Number: US-HORIZON-ACT-0227-2015

PATIENT
  Age: 28 Year
  Sex: Female

DRUGS (1)
  1. ACTIMMUNE [Suspect]
     Active Substance: INTERFERON GAMMA-1B
     Indication: PRODUCT USED FOR UNKNOWN INDICATION

REACTIONS (2)
  - Stomatitis [Not Recovered/Not Resolved]
  - Drug dose omission [Unknown]
